APPROVED DRUG PRODUCT: MINOCYCLINE HYDROCHLORIDE
Active Ingredient: MINOCYCLINE HYDROCHLORIDE
Strength: EQ 65MG BASE
Dosage Form/Route: TABLET, EXTENDED RELEASE;ORAL
Application: A065485 | Product #004
Applicant: BARR LABORATORIES INC
Approved: May 18, 2012 | RLD: No | RS: No | Type: DISCN